FAERS Safety Report 22610147 (Version 1)
Quarter: 2023Q2

REPORT INFORMATION
  Report Type: Report from Study
  Country: PK (occurrence: PK)
  Receive Date: 20230616
  Receipt Date: 20230616
  Transmission Date: 20230722
  Serious: Yes (Other)
  Sender: FDA-Public Use
  Company Number: PK-002147023-NVSC2023PK136408

PATIENT
  Sex: Male

DRUGS (2)
  1. CERTICAN [Suspect]
     Active Substance: EVEROLIMUS
     Indication: Tuberous sclerosis complex
     Dosage: 1 DOSAGE FORM, BID
     Route: 048
     Dates: start: 20221114, end: 202302
  2. CERTICAN [Suspect]
     Active Substance: EVEROLIMUS
     Dosage: 3 DOSAGE FORM, QD
     Route: 048
     Dates: start: 20230213

REACTIONS (2)
  - Critical illness [Not Recovered/Not Resolved]
  - Product use in unapproved indication [Unknown]

NARRATIVE: CASE EVENT DATE: 20230101
